FAERS Safety Report 4972259-3 (Version None)
Quarter: 2006Q1

REPORT INFORMATION
  Report Type: 
  Country: None (occurrence: None)
  Receive Date: 20060210
  Receipt Date: 20051014
  Transmission Date: 20060701
  Serious: Yes (Hospitalization)
  Sender: FDA-Public Use
  Company Number: 2005-03944

PATIENT
  Age: 65 Year
  Sex: Female
  Weight: 56.7 kg

DRUGS (5)
  1. ALORA [Suspect]
     Indication: OSTEOPOROSIS
     Dosage: SEE IMAGE, TRANSERMAL
     Route: 062
     Dates: start: 19990101, end: 20050510
  2. ALORA [Suspect]
     Indication: OSTEOPOROSIS
     Dosage: SEE IMAGE, TRANSERMAL
     Route: 062
     Dates: start: 20050511, end: 20050525
  3. ALORA [Suspect]
     Indication: OSTEOPOROSIS
     Dosage: SEE IMAGE, TRANSERMAL
     Route: 062
     Dates: start: 20050601, end: 20050611
  4. DIOVAN [Concomitant]
  5. NORVASC [Concomitant]

REACTIONS (7)
  - ASTHENIA [None]
  - BRAIN STEM INFARCTION [None]
  - EAR DISCOMFORT [None]
  - HYPERTENSION [None]
  - HYPOAESTHESIA [None]
  - MENORRHAGIA [None]
  - VERTIGO [None]
